FAERS Safety Report 8709490 (Version 5)
Quarter: 2012Q4

REPORT INFORMATION
  Report Type: Report from Study
  Country: FR (occurrence: FR)
  Receive Date: 20120806
  Receipt Date: 20120917
  Transmission Date: 20130627
  Serious: Yes (Hospitalization)
  Sender: FDA-Public Use
  Company Number: FR-TEVA-351905USA

PATIENT
  Age: 76 Year
  Sex: Male
  Weight: 96 kg

DRUGS (7)
  1. TREANDA [Suspect]
     Indication: MANTLE CELL LYMPHOMA
     Dosage: UID/QD
     Route: 042
     Dates: start: 20120709
  2. VELCADE [Suspect]
     Indication: MANTLE CELL LYMPHOMA
     Dosage: UID/QD
     Route: 058
     Dates: start: 20120709
  3. MABTHERA [Suspect]
     Indication: MANTLE CELL LYMPHOMA
     Dosage: UID/QD
     Route: 042
     Dates: start: 20120417
  4. LYRICA [Concomitant]
     Dosage: 25 Milligram Daily;
     Route: 048
     Dates: start: 20120709
  5. GLICLAZIDE [Concomitant]
     Dosage: 30 Milligram Daily;
     Route: 048
  6. PLAVIX [Concomitant]
     Dosage: 75 Milligram Daily;
     Route: 048
  7. ALPRESS [Concomitant]
     Route: 048

REACTIONS (1)
  - Ileus [Recovered/Resolved]
